FAERS Safety Report 21421743 (Version 1)
Quarter: 2022Q4

REPORT INFORMATION
  Report Type: Spontaneous
  Country: US (occurrence: US)
  Receive Date: 20221007
  Receipt Date: 20221007
  Transmission Date: 20230113
  Serious: Yes (Other)
  Sender: FDA-Public Use
  Company Number: US-NOVARTISPH-NVSC2022US222735

PATIENT
  Age: 22 Year

DRUGS (4)
  1. EVEROLIMUS [Suspect]
     Active Substance: EVEROLIMUS
     Indication: Rosai-Dorfman syndrome
     Dosage: UNK
     Route: 065
  2. COBIMETINIB [Suspect]
     Active Substance: COBIMETINIB
     Indication: Rosai-Dorfman syndrome
     Dosage: UNK
     Route: 065
  3. BINIMETINIB [Suspect]
     Active Substance: BINIMETINIB
     Indication: Rosai-Dorfman syndrome
     Dosage: UNK
     Route: 065
  4. TOCILIZUMAB [Suspect]
     Active Substance: TOCILIZUMAB
     Indication: Rosai-Dorfman syndrome
     Dosage: UNK
     Route: 065

REACTIONS (3)
  - Rosai-Dorfman syndrome [Unknown]
  - Disease progression [Unknown]
  - Product use in unapproved indication [Unknown]
